FAERS Safety Report 8150394-9 (Version None)
Quarter: 2012Q1

REPORT INFORMATION
  Report Type: 
  Country: None (occurrence: None)
  Receive Date: 20120220
  Receipt Date: 20120214
  Transmission Date: 20120608
  Serious: Yes (Death, Hospitalization)
  Sender: FDA-Public Use
  Company Number: US-BAYER-2011-104057

PATIENT
  Age: 41 Year
  Sex: Female
  Weight: 106.8 kg

DRUGS (5)
  1. DROSPIRENONE AND ETHINYL ESTRADIOL [Suspect]
     Indication: MENSTRUAL CYCLE MANAGEMENT
  2. LUPRON [Concomitant]
     Indication: UTERINE HAEMORRHAGE
     Dosage: 3.75 MG, MONTHLY
  3. YAZ [Suspect]
     Indication: MENSTRUAL CYCLE MANAGEMENT
  4. YASMIN [Suspect]
     Indication: MENSTRUAL CYCLE MANAGEMENT
  5. IRON GLUCONATE [Concomitant]
     Dosage: 325 MG, TID

REACTIONS (11)
  - PULMONARY HYPERTENSION [None]
  - HYPERKALAEMIA [None]
  - RESPIRATORY FAILURE [None]
  - ACUTE LUNG INJURY [None]
  - ANXIETY [None]
  - RESPIRATORY DISTRESS [None]
  - INJURY [None]
  - PULMONARY EMBOLISM [None]
  - CARDIOGENIC SHOCK [None]
  - PAIN [None]
  - PULMONARY INFARCTION [None]
